APPROVED DRUG PRODUCT: CEQUA
Active Ingredient: CYCLOSPORINE
Strength: 0.09%
Dosage Form/Route: SOLUTION;OPHTHALMIC
Application: N210913 | Product #001
Applicant: SUN PHARMACEUTICAL INDUSTRIES LTD
Approved: Aug 14, 2018 | RLD: Yes | RS: Yes | Type: RX

PATENTS:
Patent 8980839 | Expires: Aug 23, 2033
Patent 9937225 | Expires: Aug 23, 2033
Patent 11951153 | Expires: Feb 28, 2037
Patent 10441630 | Expires: Aug 23, 2033
Patent 10918694 | Expires: Feb 28, 2037